FAERS Safety Report 4298030-6 (Version None)
Quarter: 2004Q1

REPORT INFORMATION
  Report Type: 
  Country: None (occurrence: None)
  Receive Date: 20040218
  Receipt Date: 20011002
  Transmission Date: 20041129
  Serious: Yes (Other)
  Sender: FDA-Public Use
  Company Number: US-BRISTOL-MYERS SQUIBB COMPANY-11530847

PATIENT
  Age: 35 Year
  Sex: Female

DRUGS (10)
  1. STADOL [Suspect]
     Indication: MIGRAINE
     Route: 030
     Dates: start: 19880803
  2. STADOL [Suspect]
     Indication: MIGRAINE
     Route: 045
     Dates: start: 19920101
  3. PHENERGAN [Concomitant]
     Indication: MIGRAINE
     Route: 030
     Dates: start: 19880803
  4. FIORINAL #3 [Concomitant]
  5. PROZAC [Concomitant]
  6. INDERAL [Concomitant]
     Indication: HYPERTENSION
  7. DARVOCET [Concomitant]
  8. ELAVIL [Concomitant]
  9. PREVACID [Concomitant]
  10. PRILOSEC [Concomitant]

REACTIONS (2)
  - DEPENDENCE [None]
  - SOMNOLENCE [None]
